FAERS Safety Report 6212294-0 (Version None)
Quarter: 2009Q2

REPORT INFORMATION
  Report Type: 
  Country: None (occurrence: None)
  Receive Date: 20090602
  Receipt Date: 20090527
  Transmission Date: 20091009
  Serious: Yes (Death)
  Sender: FDA-Public Use
  Company Number: US-GILEAD-2009-0021844

PATIENT
  Sex: Female
  Weight: 71.732 kg

DRUGS (17)
  1. LETAIRIS [Suspect]
     Indication: PULMONARY ARTERIAL HYPERTENSION
     Route: 048
     Dates: start: 20080709, end: 20090430
  2. COUMADIN [Concomitant]
     Indication: CARDIAC DISORDER
  3. METOLAZONE [Concomitant]
     Indication: OEDEMA
  4. LASIX [Concomitant]
     Indication: HYPERTENSION
  5. ATENOLOL [Concomitant]
  6. PROPRANOLOL [Concomitant]
     Indication: HYPERTENSION
  7. BYSTOLIC [Concomitant]
     Indication: HYPERTENSION
  8. AVAPRO [Concomitant]
     Indication: HYPERTENSION
  9. DIGOXIN [Concomitant]
     Indication: CARDIAC DISORDER
  10. ADVAIR HFA [Concomitant]
  11. SPIRIVA [Concomitant]
  12. DUONEB [Concomitant]
  13. KLOR-CON [Concomitant]
  14. FOSAMAX [Concomitant]
     Indication: OSTEOARTHRITIS
  15. NEXIUM [Concomitant]
     Indication: GASTROOESOPHAGEAL REFLUX DISEASE
  16. XANAX [Concomitant]
  17. FERROUS SULFATE TAB [Concomitant]

REACTIONS (1)
  - RESPIRATORY FAILURE [None]
